FAERS Safety Report 9296967 (Version 1)
Quarter: 2013Q2

REPORT INFORMATION
  Report Type: Spontaneous
  Country: US (occurrence: US)
  Receive Date: 20130518
  Receipt Date: 20130518
  Transmission Date: 20140414
  Serious: No
  Sender: FDA-Public Use
  Company Number: US-009507513-1305USA007894

PATIENT
  Age: 49 Year
  Sex: Female

DRUGS (3)
  1. DULERA [Suspect]
     Indication: ASTHMA
     Dosage: ROUTE: ORAL INHALATION
     Route: 055
     Dates: end: 2013
  2. CLARITIN [Concomitant]
  3. ACCOLATE [Concomitant]

REACTIONS (1)
  - Migraine [Unknown]
